FAERS Safety Report 10419677 (Version 1)
Quarter: 2014Q3

REPORT INFORMATION
  Report Type: Spontaneous
  Country: GB (occurrence: GB)
  Receive Date: 20140829
  Receipt Date: 20140829
  Transmission Date: 20150326
  Serious: Yes (Other)
  Sender: FDA-Public Use
  Company Number: GB-BAXTER-2014BAX052138

PATIENT
  Age: 38 Year
  Sex: Male

DRUGS (11)
  1. FEIBA [Suspect]
     Active Substance: ANTI-INHIBITOR COAGULANT COMPLEX
     Dosage: 200 U KG-1
     Route: 065
  2. FEIBA [Suspect]
     Active Substance: ANTI-INHIBITOR COAGULANT COMPLEX
     Indication: PRODUCT USED FOR UNKNOWN INDICATION
     Dosage: 200 U KG-1 DAY 1
     Route: 065
  3. RFVIIA [Suspect]
     Active Substance: COAGULATION FACTOR VIIA HUMAN
     Dosage: THREE DOSES
     Route: 065
  4. FEIBA [Suspect]
     Active Substance: ANTI-INHIBITOR COAGULANT COMPLEX
     Dosage: 62.5 U KG-1
     Route: 065
  5. TRANEXAMIC ACID. [Suspect]
     Active Substance: TRANEXAMIC ACID
     Indication: PRODUCT USED FOR UNKNOWN INDICATION
     Route: 042
  6. RFVIIA [Suspect]
     Active Substance: COAGULATION FACTOR VIIA HUMAN
     Indication: FACTOR VIII DEFICIENCY
     Route: 065
  7. FEIBA [Suspect]
     Active Substance: ANTI-INHIBITOR COAGULANT COMPLEX
     Dosage: 200 U KG-1 THREE DIVIDED DOSES ON DAY 2
     Route: 065
  8. FEIBA [Suspect]
     Active Substance: ANTI-INHIBITOR COAGULANT COMPLEX
     Dosage: 200 U KG-1
     Route: 065
  9. RFVIIA [Suspect]
     Active Substance: COAGULATION FACTOR VIIA HUMAN
     Route: 065
  10. TRANEXAMIC ACID. [Suspect]
     Active Substance: TRANEXAMIC ACID
     Route: 048
  11. RFVIIA [Suspect]
     Active Substance: COAGULATION FACTOR VIIA HUMAN
     Dosage: THREE 2 HOURLY DOSES
     Route: 065

REACTIONS (4)
  - Arthralgia [Recovered/Resolved]
  - Erythema [Recovered/Resolved]
  - Haemarthrosis [Recovered/Resolved]
  - Joint swelling [Recovered/Resolved]
